FAERS Safety Report 7826541-2 (Version None)
Quarter: 2011Q4

REPORT INFORMATION
  Report Type: 
  Country: None (occurrence: None)
  Receive Date: 20111017
  Receipt Date: 20101028
  Transmission Date: 20120403
  Serious: No
  Sender: FDA-Public Use
  Company Number: 2010BH027522

PATIENT
  Sex: Male

DRUGS (2)
  1. ANTIHEMOPHILIC FACTOR NOS [Suspect]
     Indication: LACERATION
  2. ANTIHEMOPHILIC FACTOR NOS [Suspect]
     Indication: HAEMOPHILIA

REACTIONS (1)
  - HAEMORRHAGE [None]
